FAERS Safety Report 7235118-1 (Version None)
Quarter: 2011Q1

REPORT INFORMATION
  Report Type: 
  Country: None (occurrence: None)
  Receive Date: 20110120
  Receipt Date: 20110112
  Transmission Date: 20110831
  Serious: Yes (Death)
  Sender: FDA-Public Use
  Company Number: US-JNJFOC-20071001791

PATIENT
  Sex: Female
  Weight: 7.71 kg

DRUGS (8)
  1. CHILDREN'S TYLENOL PLUS COLD [Suspect]
     Indication: BRONCHOPNEUMONIA
  2. MOTRIN [Concomitant]
  3. CARBAXEFED DM RF [Suspect]
     Indication: PYREXIA
  4. CARBAXEFED DM RF [Suspect]
     Indication: BRONCHOPNEUMONIA
  5. PEDIALYTE [Concomitant]
  6. TYLENOL [Concomitant]
  7. AMOXICILLIN [Suspect]
     Indication: BRONCHOPNEUMONIA
     Dosage: Q 3 HOURS
  8. CHILDREN'S TYLENOL PLUS COLD [Suspect]
     Indication: PYREXIA

REACTIONS (5)
  - TOXICITY TO VARIOUS AGENTS [None]
  - SCREAMING [None]
  - DRUG ADMINISTRATION ERROR [None]
  - ACCIDENTAL OVERDOSE [None]
  - LISTLESS [None]
